FAERS Safety Report 11005661 (Version 1)
Quarter: 2015Q2

REPORT INFORMATION
  Report Type: Spontaneous
  Country: US (occurrence: US)
  Receive Date: 20150409
  Receipt Date: 20150409
  Transmission Date: 20150821
  Serious: No
  Sender: FDA-Public Use
  Company Number: US-ALLERGAN-1406990US

PATIENT
  Age: 74 Year
  Sex: Female

DRUGS (1)
  1. LUMIGAN [Suspect]
     Active Substance: BIMATOPROST
     Indication: PRODUCT USED FOR UNKNOWN INDICATION
     Dosage: 1 DROP IN EACH EYE PRIOR TO BEDTIME
     Route: 047
     Dates: start: 201306

REACTIONS (3)
  - Heart rate increased [Not Recovered/Not Resolved]
  - Dyspnoea [Not Recovered/Not Resolved]
  - Palpitations [Not Recovered/Not Resolved]
